FAERS Safety Report 17497609 (Version 4)
Quarter: 2020Q2

REPORT INFORMATION
  Report Type: Report from Study
  Country: US (occurrence: US)
  Receive Date: 20200304
  Receipt Date: 20200616
  Transmission Date: 20200713
  Serious: Yes (Hospitalization)
  Sender: FDA-Public Use
  Company Number: US-PFIZER INC-2018319128

PATIENT
  Age: 77 Year
  Sex: Male
  Weight: 96.7 kg

DRUGS (10)
  1. SUTENT [Suspect]
     Active Substance: SUNITINIB MALATE
     Indication: RENAL CELL CARCINOMA
     Dosage: 50 MG, ONCE DAILY (ONCE DAILY, 4 WEEKS ON, 2 WEEKS OFF)
     Route: 048
     Dates: start: 20170321
  2. LASIX [Concomitant]
     Active Substance: FUROSEMIDE
     Indication: PERIPHERAL SWELLING
     Dosage: UNK
     Route: 048
  3. GEMFIBROZIL. [Concomitant]
     Active Substance: GEMFIBROZIL
     Dosage: UNK, 2X/DAY
  4. FIBER LAX [Concomitant]
     Active Substance: CALCIUM POLYCARBOPHIL
     Dosage: UNK, 2X/DAY
     Route: 048
  5. GABAPENTIN. [Concomitant]
     Active Substance: GABAPENTIN
     Dosage: UNK, 3X/DAY
     Route: 048
  6. CHOLECALCIFEROL [Concomitant]
     Active Substance: CHOLECALCIFEROL
     Dosage: UNK
     Route: 048
  7. FRAGMIN [Suspect]
     Active Substance: DALTEPARIN SODIUM
     Indication: EMBOLISM
     Dosage: 12500 INTL UNITS/0.5 ML, DAILY
     Route: 058
     Dates: start: 20170601, end: 20180803
  8. MAGNESIUM OXIDE. [Concomitant]
     Active Substance: MAGNESIUM OXIDE
     Dosage: UNK, DAILY
     Route: 048
  9. TAMSULOSIN [Concomitant]
     Active Substance: TAMSULOSIN
     Dosage: UNK
  10. ATORVASTATIN [Concomitant]
     Active Substance: ATORVASTATIN
     Indication: BLOOD TRIGLYCERIDES
     Dosage: UNK
     Route: 048

REACTIONS (4)
  - Joint range of motion decreased [Recovered/Resolved]
  - Localised oedema [Recovered/Resolved]
  - Haematoma [Recovered/Resolved]
  - Pain in extremity [Recovered/Resolved]

NARRATIVE: CASE EVENT DATE: 20180802
